FAERS Safety Report 8303685-2 (Version None)
Quarter: 2012Q2

REPORT INFORMATION
  Report Type: 
  Country: None (occurrence: None)
  Receive Date: 20120423
  Receipt Date: 20120421
  Transmission Date: 20120825
  Serious: Yes (Other)
  Sender: FDA-Public Use
  Company Number: US-PFIZER INC-2012098693

PATIENT
  Sex: Male
  Weight: 86.168 kg

DRUGS (9)
  1. VALIUM [Concomitant]
     Indication: SCIATIC NERVE NEUROPATHY
     Dosage: 10 MG, 3X/DAY
  2. METHADONE [Concomitant]
     Indication: PAIN
     Dosage: 80 MG, 3X/DAY
     Route: 048
  3. CHANTIX [Suspect]
     Indication: SMOKING CESSATION THERAPY
     Dosage: 0.5 MG, DAILY
     Dates: start: 20120420
  4. MORPHINE [Concomitant]
     Indication: PAIN
     Dosage: 30 MG, 3X/DAY
  5. BUTALBITAL [Concomitant]
     Indication: CLUSTER HEADACHE
     Dosage: 50/325/4MG, UNK
  6. LYRICA [Concomitant]
     Indication: FIBROMYALGIA
     Dosage: 300 MG, DAILY
  7. BACLOFEN [Concomitant]
     Indication: MUSCLE RELAXANT THERAPY
     Dosage: 10 MG, 3X/DAY
  8. INDOMETHACIN [Concomitant]
     Indication: CLUSTER HEADACHE
     Dosage: 25 MG, 3X/DAY
  9. AMITRIPTYLINE [Concomitant]
     Indication: SLEEP DISORDER
     Dosage: 25 MG, DAILY

REACTIONS (3)
  - SUFFOCATION FEELING [None]
  - NAUSEA [None]
  - FEELING ABNORMAL [None]
